FAERS Safety Report 5292404-2 (Version None)
Quarter: 2007Q2

REPORT INFORMATION
  Report Type: 
  Country: None (occurrence: None)
  Receive Date: 20070410
  Receipt Date: 20070330
  Transmission Date: 20071010
  Serious: Yes (Other)
  Sender: FDA-Public Use
  Company Number: US-PFIZER INC-2005041869

PATIENT
  Sex: Male

DRUGS (6)
  1. NEURONTIN [Suspect]
     Indication: DEPRESSION
  2. XANAX [Suspect]
  3. DIAZEPAM [Concomitant]
  4. DOXEPIN HCL [Concomitant]
  5. LEXAPRO [Concomitant]
  6. ZOLOFT [Concomitant]

REACTIONS (5)
  - ANXIETY [None]
  - DEPRESSION [None]
  - DRUG INEFFECTIVE [None]
  - PHYSICAL ASSAULT [None]
  - SUICIDE ATTEMPT [None]
